FAERS Safety Report 6181426-5 (Version None)
Quarter: 2009Q2

REPORT INFORMATION
  Report Type: 
  Country: None (occurrence: None)
  Receive Date: 20090505
  Receipt Date: 20090505
  Transmission Date: 20091009
  Serious: Yes (Life-Threatening)
  Sender: FDA-Public Use
  Company Number: None

PATIENT
  Age: 64 Year
  Sex: Female
  Weight: 90.7194 kg

DRUGS (1)
  1. MIRAPEX [Suspect]
     Indication: RESTLESS LEGS SYNDROME
     Dosage: 1 AFTERNOON, 1-1/2 EVENING
     Dates: start: 20080601

REACTIONS (5)
  - ECONOMIC PROBLEM [None]
  - IMPAIRED DRIVING ABILITY [None]
  - PATHOLOGICAL GAMBLING [None]
  - PHOBIA OF DRIVING [None]
  - SOMNAMBULISM [None]
